FAERS Safety Report 7709503-5 (Version None)
Quarter: 2011Q3

REPORT INFORMATION
  Report Type: 
  Country: None (occurrence: None)
  Receive Date: 20110825
  Receipt Date: 20110815
  Transmission Date: 20111222
  Serious: Yes (Other)
  Sender: FDA-Public Use
  Company Number: US-AMGEN-USASP2011038747

PATIENT
  Age: 60 Year
  Sex: Female

DRUGS (1)
  1. ENBREL [Suspect]
     Indication: RHEUMATOID ARTHRITIS
     Dosage: 50 MG, QWK
     Dates: start: 20110609

REACTIONS (9)
  - HAEMORRHAGE [None]
  - ANIMAL BITE [None]
  - BODY TEMPERATURE FLUCTUATION [None]
  - ORAL CANDIDIASIS [None]
  - ASTHMA [None]
  - JOINT RANGE OF MOTION DECREASED [None]
  - DRUG HYPERSENSITIVITY [None]
  - RHEUMATOID ARTHRITIS [None]
  - WOUND [None]
